FAERS Safety Report 8417929-X (Version None)
Quarter: 2012Q2

REPORT INFORMATION
  Report Type: 
  Country: None (occurrence: None)
  Receive Date: 20120601
  Receipt Date: 20120601
  Transmission Date: 20120825
  Serious: Yes (Other)
  Sender: FDA-Public Use
  Company Number: None

PATIENT
  Age: 73 Year
  Sex: Male
  Weight: 74.8435 kg

DRUGS (7)
  1. BYDUREON [Suspect]
     Indication: DIABETES MELLITUS
     Dosage: 2 MG ONCE A WEEK INJECTION
     Dates: start: 20120311
  2. BYDUREON [Suspect]
     Indication: DIABETES MELLITUS
     Dosage: 2 MG ONCE A WEEK INJECTION
     Dates: start: 20120318
  3. BYDUREON [Suspect]
     Indication: DIABETES MELLITUS
     Dosage: 2 MG ONCE A WEEK INJECTION
     Dates: start: 20120401
  4. BYDUREON [Suspect]
     Indication: DIABETES MELLITUS
     Dosage: 2 MG ONCE A WEEK INJECTION
     Dates: start: 20120304
  5. BYDUREON [Suspect]
     Indication: DIABETES MELLITUS
     Dosage: 2 MG ONCE A WEEK INJECTION
     Dates: start: 20120415
  6. BYDUREON [Suspect]
     Indication: DIABETES MELLITUS
     Dosage: 2 MG ONCE A WEEK INJECTION
     Dates: start: 20120408
  7. BYDUREON [Suspect]
     Indication: DIABETES MELLITUS
     Dosage: 2 MG ONCE A WEEK INJECTION
     Dates: start: 20120325

REACTIONS (4)
  - INJECTION SITE PAIN [None]
  - INJECTION SITE MASS [None]
  - INJECTION SITE PRURITUS [None]
  - PRODUCT SUBSTITUTION ISSUE [None]
